FAERS Safety Report 6158847-X (Version None)
Quarter: 2009Q2

REPORT INFORMATION
  Report Type: 
  Country: None (occurrence: None)
  Receive Date: 20090417
  Receipt Date: 20090407
  Transmission Date: 20091009
  Serious: Yes (Life-Threatening, Hospitalization)
  Sender: FDA-Public Use
  Company Number: PHHY2009NO14261

PATIENT

DRUGS (10)
  1. STALEVO 100 [Suspect]
     Indication: PARKINSON'S DISEASE
     Dosage: 200/200/50 MG, FIVE TIMES/DAY
     Route: 048
     Dates: start: 20090321, end: 20090323
  2. PROSCAR [Concomitant]
     Dosage: 5 MG/DAY
     Route: 048
  3. LOSEC [Concomitant]
     Dosage: 20 MG/DAY
     Route: 048
  4. LACTULOSE [Concomitant]
     Dosage: 15 ML/DAY
     Route: 048
  5. RHINOCORT [Concomitant]
     Dosage: 128 UG/DAY
     Route: 045
  6. SIFROL [Concomitant]
     Indication: PARKINSON'S DISEASE
     Dosage: UNK
     Dates: end: 20090323
  7. SYMBICORT [Concomitant]
     Dosage: 4 DF/DAY
  8. FOLIC ACID [Concomitant]
     Dosage: 0.4 MG/DAY
     Route: 048
  9. FRAGMIN [Concomitant]
     Dosage: 7500 IU/DAY
     Route: 058
  10. MADOPAR [Concomitant]
     Indication: PARKINSON'S DISEASE
     Dosage: 25/100, 4 DF/DAY
     Route: 048

REACTIONS (12)
  - CYANOSIS [None]
  - DYSPNOEA [None]
  - ERYTHEMA [None]
  - EYE SWELLING [None]
  - GENERAL PHYSICAL HEALTH DETERIORATION [None]
  - HYPERCAPNIA [None]
  - HYPERSENSITIVITY [None]
  - HYPOXIA [None]
  - LARYNGOTRACHEAL OEDEMA [None]
  - RESPIRATORY FAILURE [None]
  - SWELLING FACE [None]
  - X-RAY ABNORMAL [None]
